FAERS Safety Report 9674928 (Version 1)
Quarter: 2013Q4

REPORT INFORMATION
  Report Type: Report from Study
  Country: JP (occurrence: JP)
  Receive Date: 20131107
  Receipt Date: 20131107
  Transmission Date: 20140711
  Serious: Yes (Other)
  Sender: FDA-Public Use
  Company Number: JP-JNJFOC-20131019844

PATIENT
  Age: 47 Year
  Sex: Female

DRUGS (2)
  1. TRAMCET [Suspect]
     Indication: PAIN
     Dosage: 2 PER 1 DAY
     Route: 048
     Dates: start: 20130408, end: 20130517
  2. PRIMPERAN [Concomitant]
     Indication: PROPHYLAXIS
     Dosage: 1 PER 1 DAY
     Route: 048
     Dates: start: 20130408, end: 20130517

REACTIONS (2)
  - VIIth nerve paralysis [Recovered/Resolved]
  - Headache [Recovered/Resolved]
